FAERS Safety Report 5229700-0 (Version None)
Quarter: 2007Q1

REPORT INFORMATION
  Report Type: 
  Country: None (occurrence: None)
  Receive Date: 20070202
  Receipt Date: 20070123
  Transmission Date: 20070707
  Serious: Yes (Hospitalization)
  Sender: FDA-Public Use
  Company Number: B0456299A

PATIENT
  Age: 18 Year
  Sex: Female

DRUGS (2)
  1. LAMICTAL [Suspect]
     Dosage: 200 MG / PER DAY/ UNKNOWN
  2. ORLISTAT [Suspect]
     Indication: OBESITY
     Dosage: 120 MG/ THREE TIMES PER DAY/ UNKNO

REACTIONS (2)
  - CONVULSION [None]
  - DRUG INTERACTION [None]
